FAERS Safety Report 5081989-7 (Version None)
Quarter: 2006Q3

REPORT INFORMATION
  Report Type: 
  Country: None (occurrence: None)
  Receive Date: 20060811
  Receipt Date: 20060802
  Transmission Date: 20061208
  Serious: Yes (Other)
  Sender: FDA-Public Use
  Company Number: 2006094913

PATIENT
  Age: 67 Year
  Sex: Female

DRUGS (4)
  1. DIFLUCAN [Suspect]
     Indication: SKIN CANDIDA
     Dosage: 150 MG, 1 IN 1 WK
  2. LAMISIL [Suspect]
     Indication: SKIN CANDIDA
  3. CLARITIN [Suspect]
     Indication: SKIN CANDIDA
  4. JUSTOR (CILAZAPRIL) [Concomitant]

REACTIONS (1)
  - URTICARIA GENERALISED [None]
